FAERS Safety Report 5251693-0 (Version None)
Quarter: 2007Q1

REPORT INFORMATION
  Report Type: 
  Country: None (occurrence: None)
  Receive Date: 20070228
  Receipt Date: 20061027
  Transmission Date: 20070707
  Serious: No
  Sender: FDA-Public Use
  Company Number: US-GLAXOSMITHKLINE-A0623412A

PATIENT
  Age: 17 Year
  Sex: Male
  Weight: 92.3 kg

DRUGS (2)
  1. LAMICTAL [Suspect]
     Indication: EPILEPSY
     Dosage: 250MG TWICE PER DAY
     Route: 048
     Dates: start: 20060510
  2. KEPPRA [Concomitant]
     Indication: EPILEPSY
     Dates: start: 20060821

REACTIONS (4)
  - ANOREXIA [None]
  - NEUTROPHIL COUNT DECREASED [None]
  - WEIGHT DECREASED [None]
  - WHITE BLOOD CELL COUNT DECREASED [None]
